FAERS Safety Report 8868247 (Version 2)
Quarter: 2013Q2

REPORT INFORMATION
  Report Type: Spontaneous
  Country: US (occurrence: US)
  Receive Date: 20121026
  Receipt Date: 20130604
  Transmission Date: 20140414
  Serious: Yes (Other)
  Sender: FDA-Public Use
  Company Number: US-AMGEN-USASP2012039897

PATIENT
  Age: 50 Year
  Sex: Female
  Weight: 66.66 kg

DRUGS (4)
  1. ENBREL [Suspect]
     Indication: RHEUMATOID ARTHRITIS
     Dosage: 50 MG, QWK
     Route: 058
     Dates: start: 20110505, end: 20120702
  2. HUMIRA [Suspect]
     Dosage: UNK
  3. ARTHROTEC [Concomitant]
     Indication: RHEUMATOID ARTHRITIS
     Dosage: 75 MG, BID
     Route: 048
     Dates: start: 20110503, end: 20130114
  4. TRAMADOL [Concomitant]
     Indication: RHEUMATOID ARTHRITIS
     Dosage: 50 UNK, QWK
     Route: 048
     Dates: start: 20110503, end: 20130114

REACTIONS (11)
  - Lupus-like syndrome [Unknown]
  - Fatigue [Not Recovered/Not Resolved]
  - Red blood cell sedimentation rate increased [Recovered/Resolved]
  - Joint swelling [Recovered/Resolved]
  - C-reactive protein increased [Recovered/Resolved]
  - Rash vesicular [Recovered/Resolved]
  - Local swelling [Recovered/Resolved]
  - Pain in extremity [Recovered/Resolved]
  - Arthralgia [Recovered/Resolved]
  - Antinuclear antibody positive [Recovered/Resolved]
  - Herpes zoster [Recovered/Resolved]
